FAERS Safety Report 10291110 (Version 1)
Quarter: 2014Q3

REPORT INFORMATION
  Report Type: Spontaneous
  Country: FR (occurrence: FR)
  Receive Date: 20140710
  Receipt Date: 20140710
  Transmission Date: 20150326
  Serious: Yes (Other)
  Sender: FDA-Public Use
  Company Number: FR-JNJFOC-20140618964

PATIENT
  Sex: Male

DRUGS (1)
  1. ARESTAL [Suspect]
     Active Substance: LOPERAMIDE OXIDE
     Indication: DIARRHOEA
     Route: 048

REACTIONS (4)
  - Asphyxia [Unknown]
  - Gastrooesophageal reflux disease [Unknown]
  - Increased viscosity of bronchial secretion [Unknown]
  - Epiglottitis obstructive [Unknown]
